FAERS Safety Report 7385585-8 (Version None)
Quarter: 2011Q1

REPORT INFORMATION
  Report Type: 
  Country: None (occurrence: None)
  Receive Date: 20110331
  Receipt Date: 20110321
  Transmission Date: 20110831
  Serious: No
  Sender: FDA-Public Use
  Company Number: US-BIOGENIDEC-2011BI008822

PATIENT
  Age: 42 Year
  Sex: Female

DRUGS (3)
  1. TYSABRI [Suspect]
     Indication: MULTIPLE SCLEROSIS
     Route: 042
     Dates: start: 20090205
  2. TYSABRI [Suspect]
     Route: 042
     Dates: end: 20080930
  3. AVONEX [Concomitant]
     Indication: MULTIPLE SCLEROSIS
     Route: 030
     Dates: start: 20021023

REACTIONS (3)
  - VENOUS OPERATION [None]
  - MUSCULOSKELETAL DISORDER [None]
  - SENSATION OF HEAVINESS [None]
